FAERS Safety Report 16770619 (Version 1)
Quarter: 2019Q3

REPORT INFORMATION
  Report Type: Report from Study
  Country: US (occurrence: US)
  Receive Date: 20190904
  Receipt Date: 20190904
  Transmission Date: 20191005
  Serious: Yes (Hospitalization)
  Sender: FDA-Public Use
  Company Number: US-ROCHE-2387666

PATIENT
  Age: 2 Year
  Sex: Male

DRUGS (1)
  1. NUTROPIN [Suspect]
     Active Substance: SOMATROPIN
     Indication: END STAGE RENAL DISEASE
     Route: 058

REACTIONS (3)
  - Peritonitis [Unknown]
  - Klebsiella bacteraemia [Unknown]
  - Staphylococcal bacteraemia [Unknown]
